FAERS Safety Report 22097872 (Version 2)
Quarter: 2023Q1

REPORT INFORMATION
  Report Type: Spontaneous
  Country: JP (occurrence: JP)
  Receive Date: 20230315
  Receipt Date: 20230330
  Transmission Date: 20230417
  Serious: Yes (Hospitalization, Other)
  Sender: FDA-Public Use
  Company Number: JP-GSKNCCC-Case-01688621_AE-68410

PATIENT

DRUGS (5)
  1. TRELEGY ELLIPTA [Suspect]
     Active Substance: FLUTICASONE FUROATE\UMECLIDINIUM BROMIDE\VILANTEROL TRIFENATATE
     Indication: Asthma
     Dosage: 200 ?G, QD, 1 INHALATION
     Route: 055
     Dates: start: 20210305
  2. CRESTOR OD TABLETS [Concomitant]
     Indication: Blood cholesterol increased
     Dosage: 2.5 MG, QD
     Route: 048
     Dates: start: 20140908
  3. TORSEMIDE [Concomitant]
     Active Substance: TORSEMIDE
     Indication: Oedema
     Dosage: 2 MG, QD
     Route: 048
     Dates: start: 20230210
  4. CANDESARTAN CILEXETIL [Concomitant]
     Active Substance: CANDESARTAN CILEXETIL
     Indication: Cardiac disorder
     Dosage: 4 MG, QD
     Route: 048
     Dates: start: 20230217
  5. EDIROL CAPSULE [Concomitant]
     Indication: Osteoporosis
     Dosage: 0.75 ?G, QD
     Route: 048
     Dates: start: 20140908

REACTIONS (2)
  - Tuberculosis [Recovered/Resolved]
  - Productive cough [Unknown]

NARRATIVE: CASE EVENT DATE: 20220601
